FAERS Safety Report 8797099 (Version 1)
Quarter: 2012Q4

REPORT INFORMATION
  Report Type: 
  Country: ES (occurrence: ES)
  Receive Date: 20120919
  Receipt Date: 20120919
  Transmission Date: 20130627
  Serious: Yes (Other)
  Sender: FDA-Public Use
  Company Number: ES-009507513-1209ESP006607

PATIENT
  Age: 75 Year
  Sex: Female
  Weight: 59 kg

DRUGS (1)
  1. VYTORIN [Suspect]
     Indication: HYPERCHOLESTEROLAEMIA
     Dosage: 10mg/20mg, qd
     Route: 048
     Dates: start: 20120402, end: 20120414

REACTIONS (3)
  - Respiratory distress [Unknown]
  - Myalgia [Unknown]
  - Nausea [Unknown]
